FAERS Safety Report 18794697 (Version 1)
Quarter: 2021Q1

REPORT INFORMATION
  Report Type: Spontaneous
  Country: CN (occurrence: CN)
  Receive Date: 20210127
  Receipt Date: 20210127
  Transmission Date: 20210419
  Serious: Yes (Other)
  Sender: FDA-Public Use
  Company Number: CN-PFIZER INC-2021064542

PATIENT
  Age: 89 Year
  Sex: Male
  Weight: 65 kg

DRUGS (2)
  1. SODIUM CHLORIDE. [Concomitant]
     Active Substance: SODIUM CHLORIDE
     Indication: ANTI-INFECTIVE THERAPY
     Dosage: 100 ML, 3X/DAY
     Route: 041
     Dates: start: 20210119, end: 20210121
  2. TAZOCIN [Suspect]
     Active Substance: PIPERACILLIN SODIUM\TAZOBACTAM SODIUM
     Indication: ANTI-INFECTIVE THERAPY
     Dosage: 4.5 G, 3X/DAY (EVERY 8HOURS)
     Route: 041
     Dates: start: 20210119, end: 20210121

REACTIONS (11)
  - Skin discharge [Unknown]
  - Skin exfoliation [Unknown]
  - Purpura [Not Recovered/Not Resolved]
  - Erythema [Unknown]
  - Skin lesion [Recovering/Resolving]
  - Tinea infection [Unknown]
  - Rash [Not Recovered/Not Resolved]
  - Rash maculo-papular [Unknown]
  - Pruritus [Unknown]
  - Eosinophil count increased [Unknown]
  - Drug hypersensitivity [Unknown]

NARRATIVE: CASE EVENT DATE: 20210119
